FAERS Safety Report 23162174 (Version 2)
Quarter: 2024Q2

REPORT INFORMATION
  Report Type: Spontaneous
  Country: IT (occurrence: IT)
  Receive Date: 20231109
  Receipt Date: 20240402
  Transmission Date: 20240716
  Serious: Yes (Hospitalization, Other)
  Sender: FDA-Public Use
  Company Number: None

PATIENT
  Age: 92 Year
  Sex: Male

DRUGS (10)
  1. ELIQUIS [Suspect]
     Active Substance: APIXABAN
     Indication: Atrial fibrillation
     Dosage: ELIQUIS*60CPR RIV 2,5MG: - DOSAGE SCHEDULE: 2 CP/DAY
     Route: 048
     Dates: start: 20211007, end: 20211027
  2. GAVISCON ADVANCED [Concomitant]
     Indication: Gastrooesophageal reflux disease
     Dosage: GAVISCON ADVANCE*20BUST 10MLME - 1 BS BEFORE MAIN MEALS
     Route: 048
     Dates: start: 2021
  3. LASIX [Concomitant]
     Active Substance: FUROSEMIDE
     Indication: Hypertension
     Dosage: LASIX*30CPR25MG - 1 EVERY 8 HOURS
     Route: 048
     Dates: start: 2021
  4. LASIX [Concomitant]
     Active Substance: FUROSEMIDE
     Indication: Cardiac failure
  5. AVODART [Concomitant]
     Active Substance: DUTASTERIDE
     Indication: Benign prostatic hyperplasia
     Dosage: AVODART*30CPS SOFT 0.5MG- 1 CP DAY
     Route: 048
     Dates: start: 2021, end: 202110
  6. VALSARTAN [Concomitant]
     Active Substance: VALSARTAN
     Indication: Cardiac failure
     Dosage: TAREG*14CPR RIV 40MG PVC/PVDC- 1 CP DAY
     Route: 048
     Dates: start: 2021
  7. METOPROLOL TARTRATE [Concomitant]
     Active Substance: METOPROLOL TARTRATE
     Indication: Hypertension
     Dosage: LOPRESOR*30CPR RIV 100MG-1 CP DAY 8 AM AND 8 PM
     Route: 048
     Dates: start: 2021
  8. TAMSULOSIN HYDROCHLORIDE [Concomitant]
     Active Substance: TAMSULOSIN HYDROCHLORIDE
     Indication: Benign prostatic hyperplasia
     Dosage: OMNIC*20CPS 0.4MG RM - 1 CP DAY
     Route: 048
     Dates: start: 2021
  9. PEPTAZOLE [PANTOPRAZOLE SODIUM SESQUIHYDRATE] [Concomitant]
     Indication: Hiatus hernia
     Dosage: PEPTAZOL*28CPR GASTR 40MG- 1 CP DAY
     Route: 048
     Dates: start: 2021
  10. PEPTAZOLE [PANTOPRAZOLE SODIUM SESQUIHYDRATE] [Concomitant]
     Indication: Gastrooesophageal reflux disease

REACTIONS (3)
  - Cardiac failure [Recovered/Resolved with Sequelae]
  - Cardiorenal syndrome [Recovered/Resolved with Sequelae]
  - Anaemia [Recovered/Resolved]

NARRATIVE: CASE EVENT DATE: 20211027
